FAERS Safety Report 23362447 (Version 1)
Quarter: 2024Q1

REPORT INFORMATION
  Report Type: Spontaneous
  Country: US (occurrence: None)
  Receive Date: 20240102
  Receipt Date: 20240102
  Transmission Date: 20240410
  Serious: No
  Sender: FDA-Public Use
  Company Number: None

PATIENT
  Age: 71 Year
  Sex: Female

DRUGS (9)
  1. REPATHA [Suspect]
     Active Substance: EVOLOCUMAB
     Indication: Hyperlipidaemia
     Dosage: OTHER FREQUENCY : EVERY14DAYS;?
     Route: 058
     Dates: start: 20230504
  2. IBUPROFEN 400MG [Concomitant]
  3. MODAFINIL [Concomitant]
  4. CENTRUM SILV ADULT [Concomitant]
  5. DOCUSATE SOD [Concomitant]
  6. DULOXETINE DR [Concomitant]
  7. FAMOTIDINE [Concomitant]
  8. LEVOTHYROXINE [Concomitant]
  9. NAPROXEN [Concomitant]

REACTIONS (1)
  - Injection site mass [None]
